FAERS Safety Report 13135941 (Version 8)
Quarter: 2017Q3

REPORT INFORMATION
  Report Type: Spontaneous
  Country: KR (occurrence: KR)
  Receive Date: 20170120
  Receipt Date: 20170922
  Transmission Date: 20171127
  Serious: Yes (Hospitalization)
  Sender: FDA-Public Use
  Company Number: KR-009507513-1701KOR008103

PATIENT
  Age: 42 Year
  Sex: Male
  Weight: 67 kg

DRUGS (30)
  1. CISPLATIN. [Concomitant]
     Active Substance: CISPLATIN
     Indication: CHOLANGIOCARCINOMA
     Dosage: 134.25 MG, ONCE, CYCLE 1, STRENGTH: 50MG/100ML
     Route: 042
     Dates: start: 20160627, end: 20160627
  2. LEVOMELS [Concomitant]
     Dosage: 1 G, QD, STRENGTH: 500MG/5ML
     Route: 042
     Dates: start: 20160702, end: 20160710
  3. MEPERIDINE HYDROCHLORIDE. [Concomitant]
     Active Substance: MEPERIDINE HYDROCHLORIDE
     Indication: CHOLANGIOCARCINOMA
     Dosage: 1 ML, ONCE
     Route: 042
     Dates: start: 20160615, end: 20160615
  4. FLUOROURACIL. [Concomitant]
     Active Substance: FLUOROURACIL
     Dosage: 1780 MG, QD, CYCLE 2, STRENGTH: 1000MG/20ML
     Route: 042
     Dates: start: 20160725, end: 20160728
  5. DEXAMETHASONE SODIUM PHOSPHATE. [Concomitant]
     Active Substance: DEXAMETHASONE SODIUM PHOSPHATE
     Dosage: 10 MG, ONCE
     Route: 042
     Dates: start: 20160725, end: 20160725
  6. ALOXI [Concomitant]
     Active Substance: PALONOSETRON HYDROCHLORIDE
     Dosage: 0.25 MG, ONCE
     Route: 042
     Dates: start: 20160725, end: 20160725
  7. URSA TABLETS [Concomitant]
     Dosage: 2 TABLET (200 MG), TID
     Route: 048
     Dates: start: 20160710
  8. METRONIDAZOLE. [Concomitant]
     Active Substance: METRONIDAZOLE
     Indication: INFECTION PROPHYLAXIS
     Dosage: 100 ML, TID. STRENGTH: 100ML (BTL) PP
     Route: 042
     Dates: start: 20160616, end: 20160620
  9. CISPLATIN. [Concomitant]
     Active Substance: CISPLATIN
     Dosage: 133.5 MG, ONCE, CYCLE 2, STRENGTH: 50MG/100ML
     Route: 042
     Dates: start: 20160725, end: 20160725
  10. DEXAMETHASONE. [Concomitant]
     Active Substance: DEXAMETHASONE
     Dosage: 3.75 MG, BID
     Route: 048
     Dates: start: 20160726, end: 20160728
  11. TROLAC [Concomitant]
     Indication: PAIN
     Dosage: 30 MG, ONCE, STRENGTH: 30MG/ML
     Route: 042
     Dates: start: 20160701, end: 20160701
  12. PANTOLINE INJECTION [Concomitant]
     Dosage: 40 MG, ONCE
     Route: 042
     Dates: start: 20160727, end: 20160727
  13. DEXAMETHASONE. [Concomitant]
     Active Substance: DEXAMETHASONE
     Indication: PROPHYLAXIS OF NAUSEA AND VOMITING
     Dosage: 3.75 MG, BID
     Route: 048
     Dates: start: 20160628, end: 20160630
  14. VIREAD [Concomitant]
     Active Substance: TENOFOVIR DISOPROXIL FUMARATE
     Indication: HEPATITIS B
     Dosage: 300 MG, QD
     Route: 048
     Dates: start: 20160614
  15. ALOXI [Concomitant]
     Active Substance: PALONOSETRON HYDROCHLORIDE
     Indication: NAUSEA
     Dosage: 0.25 MG, ONCE
     Route: 042
     Dates: start: 20160627, end: 20160627
  16. GODEX CAP [Concomitant]
     Dosage: 1 DF, BID
     Route: 048
     Dates: start: 20160710
  17. NEXIUM I.V. [Concomitant]
     Active Substance: ESOMEPRAZOLE SODIUM
     Indication: PROPHYLAXIS
     Dosage: 40 MG, ONCE
     Route: 042
     Dates: start: 20170701, end: 20170701
  18. DENOGAN [Concomitant]
     Active Substance: PROPACETAMOL HYDROCHLORIDE
     Indication: PROPHYLAXIS
     Dosage: 1 G, QD (THIS DRUG WAS NOT ADMINISTERED FROM 17-JUN-2016 TO 01-JUL-2016.)
     Route: 042
     Dates: start: 20160616, end: 20160704
  19. EMEND (FOSAPREPITANT DIMEGLUMINE) [Suspect]
     Active Substance: FOSAPREPITANT DIMEGLUMINE
     Indication: PROPHYLAXIS OF NAUSEA AND VOMITING
     Dosage: 150 MG, ONCE
     Route: 042
     Dates: start: 20160627, end: 20160627
  20. EMEND (FOSAPREPITANT DIMEGLUMINE) [Suspect]
     Active Substance: FOSAPREPITANT DIMEGLUMINE
     Dosage: 150 MG, ONCE
     Route: 042
     Dates: start: 20160725, end: 20160725
  21. DEXAMETHASONE SODIUM PHOSPHATE. [Concomitant]
     Active Substance: DEXAMETHASONE SODIUM PHOSPHATE
     Indication: PROPHYLAXIS OF NAUSEA AND VOMITING
     Dosage: 10 MG, ONCE
     Route: 042
     Dates: start: 20160627, end: 20160627
  22. PANTOLINE INJECTION [Concomitant]
     Indication: PROPHYLAXIS
     Dosage: 40 MG, QD (THIS DRUG WAS NOT ADMINISTERED FROM 17-JUN-2016 TO 30-JUN-2016.)
     Route: 042
     Dates: start: 20160616, end: 20160708
  23. FLUOROURACIL. [Concomitant]
     Active Substance: FLUOROURACIL
     Indication: CHOLANGIOCARCINOMA
     Dosage: 1790 MG, DAILY, CYCLE 1, STRENGTH: 1000MG/20ML
     Route: 042
     Dates: start: 20160627, end: 20160630
  24. URSA TABLETS [Concomitant]
     Indication: HEPATITIS B
     Dosage: 100 MG (1 TABLET), TID
     Route: 048
     Dates: start: 20160620, end: 20160630
  25. GODEX CAP [Concomitant]
     Indication: HEPATITIS B
     Dosage: 1 CAPSULE, BID
     Route: 048
     Dates: start: 20160620, end: 20160628
  26. LEVOMELS [Concomitant]
     Indication: HEPATITIS B
     Dosage: 10 G, ONCE
     Route: 042
     Dates: start: 20160701, end: 20160701
  27. METRONIDAZOLE. [Concomitant]
     Active Substance: METRONIDAZOLE
     Dosage: 100 ML, TID. STRENGTH: 100ML (BTL) PP
     Route: 042
     Dates: start: 20160701, end: 20160703
  28. LASIX [Concomitant]
     Active Substance: FUROSEMIDE
     Indication: PROPHYLAXIS
     Dosage: 20 MG, ONCE, STRENGTH: 20MG/2ML
     Route: 042
     Dates: start: 20160627, end: 20160627
  29. LEVOMELS [Concomitant]
     Indication: HEPATITIS B
     Dosage: 1 G, QD, STRENGTH: 500MG/5ML
     Route: 042
     Dates: start: 20160616, end: 20160617
  30. CEFTRIAXONE SODIUM. [Concomitant]
     Active Substance: CEFTRIAXONE SODIUM
     Indication: INFECTION PROPHYLAXIS
     Dosage: 2 G, QD
     Route: 042
     Dates: start: 20160616, end: 20160710

REACTIONS (2)
  - Pyrexia [Recovered/Resolved]
  - Jaundice [Recovered/Resolved]

NARRATIVE: CASE EVENT DATE: 20160701
